FAERS Safety Report 12146871 (Version 1)
Quarter: 2016Q1

REPORT INFORMATION
  Report Type: Spontaneous
  Country: US (occurrence: US)
  Receive Date: 20160304
  Receipt Date: 20160304
  Transmission Date: 20160526
  Serious: No
  Sender: FDA-Public Use
  Company Number: US-INDIVIOR LIMITED-RB-074768-2015

PATIENT
  Age: 46 Year
  Sex: Male

DRUGS (5)
  1. SUBOXONE [Suspect]
     Active Substance: BUPRENORPHINE HYDROCHLORIDE\NALOXONE HYDROCHLORIDE
     Indication: DRUG DEPENDENCE
     Dosage: 48 MG, DAILY (A FEW MONTHS)
     Route: 060
     Dates: start: 2010
  2. BUPRENORPHINE/NALOXONE GENERIC [Suspect]
     Active Substance: BUPRENORPHINE\NALOXONE
     Dosage: TAPERED FROM 32 MG TO 16 MG,
     Route: 060
     Dates: start: 201407, end: 2014
  3. SUBOXONE [Suspect]
     Active Substance: BUPRENORPHINE HYDROCHLORIDE\NALOXONE HYDROCHLORIDE
     Indication: PAIN
     Dosage: 8 MG, QID (ABOUT 3 YEARS)
     Route: 060
     Dates: start: 2010, end: 2013
  4. BUPRENORPHINE/NALOXONE GENERIC [Suspect]
     Active Substance: BUPRENORPHINE\NALOXONE
     Dosage: 8 MG, BID
     Route: 060
     Dates: start: 2014
  5. BUPRENORPHINE/NALOXONE GENERIC [Suspect]
     Active Substance: BUPRENORPHINE\NALOXONE
     Indication: DRUG DEPENDENCE
     Dosage: 8 MG, QID
     Route: 060
     Dates: start: 2013, end: 201407

REACTIONS (12)
  - Prescribed overdose [Recovered/Resolved]
  - Toothache [Not Recovered/Not Resolved]
  - Rash [Not Recovered/Not Resolved]
  - Jaw cyst [Unknown]
  - Drug eruption [Unknown]
  - Tooth loss [Not Recovered/Not Resolved]
  - Oral pain [Not Recovered/Not Resolved]
  - Intentional underdose [Not Recovered/Not Resolved]
  - Vomiting [Recovered/Resolved]
  - Diarrhoea [Recovered/Resolved]
  - Bone loss [Not Recovered/Not Resolved]
  - Drug prescribing error [Recovered/Resolved]

NARRATIVE: CASE EVENT DATE: 2010
